FAERS Safety Report 16931964 (Version 2)
Quarter: 2019Q4

REPORT INFORMATION
  Report Type: Not Available
  Country: US (occurrence: US)
  Receive Date: 20191017
  Receipt Date: 20191108
  Transmission Date: 20200122
  Serious: Yes (Death)
  Sender: FDA-Public Use
  Company Number: US-NEUROCRINE BIOSCIENCES INC.-2019NBI03046

PATIENT
  Age: 63 Year
  Sex: Male

DRUGS (16)
  1. PROPRANOLOL [Concomitant]
     Active Substance: PROPRANOLOL HYDROCHLORIDE
  2. IMODIUM [Concomitant]
     Active Substance: LOPERAMIDE HYDROCHLORIDE
  3. MAGNESIUM [Concomitant]
     Active Substance: MAGNESIUM
  4. AMANTADINE. [Concomitant]
     Active Substance: AMANTADINE HYDROCHLORIDE
  5. CORICIDIN [Concomitant]
     Active Substance: ACETAMINOPHEN\CHLORPHENIRAMINE MALEATE
  6. LACTULOSE. [Concomitant]
     Active Substance: LACTULOSE
  7. RIBOFLAVIN [Concomitant]
     Active Substance: RIBOFLAVIN
  8. TESSALON [Concomitant]
     Active Substance: BENZONATATE
  9. CHLORHEXIDINE [Concomitant]
     Active Substance: CHLORHEXIDINE
  10. TYLENOL [Concomitant]
     Active Substance: ACETAMINOPHEN
  11. ZYPREXA [Concomitant]
     Active Substance: OLANZAPINE
  12. TOPAMAX [Concomitant]
     Active Substance: TOPIRAMATE
  13. IMITREX [Concomitant]
     Active Substance: SUMATRIPTAN SUCCINATE
  14. INGREZZA [Suspect]
     Active Substance: VALBENAZINE
     Indication: TARDIVE DYSKINESIA
     Route: 048
     Dates: start: 20181205, end: 20191007
  15. TUMS [Concomitant]
     Active Substance: CALCIUM CARBONATE
  16. VITAMIN E [Concomitant]
     Active Substance: .ALPHA.-TOCOPHEROL

REACTIONS (1)
  - Death [Fatal]

NARRATIVE: CASE EVENT DATE: 20191007
